FAERS Safety Report 6696882-3 (Version None)
Quarter: 2010Q2

REPORT INFORMATION
  Report Type: 
  Country: None (occurrence: None)
  Receive Date: 20100421
  Receipt Date: 20100409
  Transmission Date: 20101027
  Serious: Yes (Life-Threatening, Hospitalization)
  Sender: FDA-Public Use
  Company Number: DSA_42532_2010

PATIENT
  Age: 70 Year
  Sex: Female

DRUGS (15)
  1. ENALAPRIL MALEATE [Suspect]
     Indication: HYPERTENSION
     Dosage: (10 MG QD ORAL)
     Route: 048
     Dates: end: 20090802
  2. ENEAS (ENALAPRIL MALEATE + NITRENDIPINE) [Suspect]
     Indication: HYPERTENSION
     Dosage: (10-20 MG DAILY ORAL)
     Route: 048
     Dates: end: 20090802
  3. TORSEMIDE [Suspect]
     Indication: HYPERTENSION
     Dosage: (10 MG QD ORAL)
     Route: 048
     Dates: end: 20090804
  4. BISOPROLOL FUMARATE AND HYDROCHLOROTHIAZIDE [Suspect]
     Indication: HYPERTENSION
     Dosage: (5-12.5 MG DAILY ORAL)
     Route: 048
     Dates: end: 20090802
  5. SPIRONOLACTONE [Suspect]
     Indication: HYPERTENSION
     Dosage: (25 MG QD ORAL)
     Route: 048
     Dates: end: 20090802
  6. DOXAZOSIN MESYLATE [Suspect]
     Indication: HYPERTENSION
     Dosage: (4 MG QD ORAL)
     Route: 048
  7. VENLAFAXINE HYDROCHLORIDE [Suspect]
     Indication: DRUG USE FOR UNKNOWN INDICATION
     Dosage: (37.5 MG BID ORAL)
     Route: 048
     Dates: end: 20090802
  8. DICLOFENAC [Suspect]
     Indication: PAIN
     Dosage: (50 MG QD ORAL)
     Route: 048
     Dates: end: 20090802
  9. ASPIRIN [Concomitant]
  10. DIGITOXIN [Concomitant]
  11. LANTUS [Concomitant]
  12. ACTRAPID [Concomitant]
  13. XALATAN [Concomitant]
  14. METFORMIN HCL [Concomitant]
  15. NIASPAN [Concomitant]

REACTIONS (12)
  - ACUTE PRERENAL FAILURE [None]
  - BICYTOPENIA [None]
  - BIOPSY BONE MARROW ABNORMAL [None]
  - DEHYDRATION [None]
  - ERYTHROPENIA [None]
  - GASTROENTERITIS [None]
  - GENERAL PHYSICAL HEALTH DETERIORATION [None]
  - HAEMOGLOBIN DECREASED [None]
  - HYPERKALAEMIA [None]
  - NAUSEA [None]
  - THROMBOCYTOPENIA [None]
  - VOMITING [None]
